FAERS Safety Report 5362406-6 (Version None)
Quarter: 2007Q2

REPORT INFORMATION
  Report Type: 
  Country: None (occurrence: None)
  Receive Date: 20070619
  Receipt Date: 20070607
  Transmission Date: 20071010
  Serious: Yes (Hospitalization)
  Sender: FDA-Public Use
  Company Number: JP-ASTRAZENECA-2007AP03475

PATIENT
  Age: 56 Year
  Sex: Female

DRUGS (17)
  1. CRESTOR [Suspect]
     Indication: HYPERCHOLESTEROLAEMIA
     Route: 048
     Dates: start: 20070501, end: 20070605
  2. ACTOS [Suspect]
     Route: 048
  3. BASEN OD [Suspect]
     Route: 048
  4. PREMINENT [Suspect]
     Route: 048
     Dates: start: 20070501
  5. TAURINE [Concomitant]
     Route: 048
  6. TEGRETOL [Concomitant]
     Route: 048
  7. EPADEL S [Concomitant]
     Route: 048
  8. PROCYLIN [Concomitant]
     Route: 048
  9. DEPAS [Concomitant]
     Route: 048
  10. GASTER D [Concomitant]
     Route: 048
  11. SHAKUYAKU-KANZO-TO [Concomitant]
     Route: 048
  12. VOLTAREN [Concomitant]
     Route: 048
  13. FRANDOL S [Concomitant]
  14. VOLTAREN [Concomitant]
  15. ADALAT [Concomitant]
     Route: 048
  16. VOLTAREN [Concomitant]
     Route: 048
  17. LIPITOR [Concomitant]

REACTIONS (1)
  - FEELING COLD [None]
